FAERS Safety Report 10169998 (Version 4)
Quarter: 2014Q4

REPORT INFORMATION
  Report Type: Report from Study
  Country: CA (occurrence: CA)
  Receive Date: 20140513
  Receipt Date: 20141209
  Transmission Date: 20150528
  Serious: Yes (Other)
  Sender: FDA-Public Use
  Company Number: CA-INCYTE CORPORATION-2014IN001238

PATIENT
  Sex: Female

DRUGS (4)
  1. NADOLOL. [Concomitant]
     Active Substance: NADOLOL
     Indication: PRODUCT USED FOR UNKNOWN INDICATION
     Dosage: UNK
  2. NADOLOL. [Concomitant]
     Active Substance: NADOLOL
     Dosage: UNK UKN, UNK
     Route: 065
  3. NADOLOL. [Concomitant]
     Active Substance: NADOLOL
     Dosage: UNK UKN, UNK
  4. JAKAFI [Suspect]
     Active Substance: RUXOLITINIB
     Indication: MYELOFIBROSIS
     Dosage: 20 MG, QD
     Route: 048
     Dates: start: 201210

REACTIONS (13)
  - Gastrointestinal haemorrhage [Unknown]
  - Full blood count decreased [Unknown]
  - Peripheral swelling [Unknown]
  - Skin tightness [Unknown]
  - Rash pruritic [Unknown]
  - Mass [Unknown]
  - Migraine [Unknown]
  - Blister [Unknown]
  - Rash [Unknown]
  - Fluid retention [Unknown]
  - Dysphagia [Unknown]
  - Headache [Unknown]
  - Pain [Unknown]
